FAERS Safety Report 8816937 (Version 1)
Quarter: 2012Q4

REPORT INFORMATION
  Report Type: Spontaneous
  Country: US (occurrence: None)
  Receive Date: 20121004
  Receipt Date: 20121004
  Transmission Date: 20130627
  Serious: Yes (Hospitalization, Other)
  Sender: FDA-Public Use
  Company Number: None

PATIENT
  Age: 58 Year
  Sex: Male

DRUGS (7)
  1. DEPO-MEDROL [Suspect]
     Route: 008
     Dates: start: 20120627, end: 20120702
  2. DEPO-MEDROL [Suspect]
     Route: 008
     Dates: start: 20120627, end: 20120702
  3. SODIUM CHLORIDE [Concomitant]
  4. LIDOCAINE [Concomitant]
  5. LIDOCAINE HCL [Concomitant]
  6. EPINEPHRINE [Concomitant]
  7. POVIDINE-IODINE [Concomitant]

REACTIONS (3)
  - Meningitis bacterial [None]
  - Dehydration [None]
  - Hypotension [None]
